FAERS Safety Report 4373456-0 (Version None)
Quarter: 2004Q2

REPORT INFORMATION
  Report Type: 
  Country: None (occurrence: None)
  Receive Date: 20040603
  Receipt Date: 20040525
  Transmission Date: 20050107
  Serious: Yes (Hospitalization, Other)
  Sender: FDA-Public Use
  Company Number: 2004214004DE

PATIENT
  Age: 55 Year
  Sex: Female
  Weight: 40 kg

DRUGS (6)
  1. MYCOBUTIN [Suspect]
     Indication: MYCOBACTERIAL INFECTION
     Dosage: 150 MG, TID, ORAL
     Route: 048
     Dates: start: 20010428
  2. KLACID [Concomitant]
  3. ACC LONG [Concomitant]
  4. EMB-FATOL (ETHAMBUTOL DIHYDROCHLORIDE) [Concomitant]
  5. DECORTIN-H [Concomitant]
  6. THEOPHYLLINE [Concomitant]

REACTIONS (2)
  - ARTHRITIS [None]
  - UVEITIS [None]
